FAERS Safety Report 6925895-9 (Version None)
Quarter: 2010Q3

REPORT INFORMATION
  Report Type: 
  Country: None (occurrence: None)
  Receive Date: 20100816
  Receipt Date: 20100803
  Transmission Date: 20110219
  Serious: Yes (Other)
  Sender: FDA-Public Use
  Company Number: PHHY2010IE50854

PATIENT
  Age: 54 Year
  Sex: Female

DRUGS (4)
  1. RASILEZ [Suspect]
     Indication: HYPERTENSION
     Dosage: 150 MG
     Dates: start: 20100527
  2. BONIVA [Concomitant]
  3. CALCICHEW [Concomitant]
     Dosage: 500 MG
  4. D3 [Concomitant]

REACTIONS (2)
  - HEADACHE [None]
  - PALPITATIONS [None]
